FAERS Safety Report 12746588 (Version 7)
Quarter: 2017Q2

REPORT INFORMATION
  Report Type: Spontaneous
  Country: US (occurrence: US)
  Receive Date: 20160915
  Receipt Date: 20170519
  Transmission Date: 20170830
  Serious: No
  Sender: FDA-Public Use
  Company Number: US-ACTELION-A-NJ2016-141910

PATIENT
  Age: 70 Year
  Sex: Male

DRUGS (9)
  1. SILVER COLLOIDAL [Concomitant]
     Active Substance: SILVER
  2. BIOTIN [Concomitant]
     Active Substance: BIOTIN
  3. VALSARTAN. [Concomitant]
     Active Substance: VALSARTAN
  4. VALCHLOR [Suspect]
     Active Substance: MECHLORETHAMINE
     Indication: MYCOSIS FUNGOIDES
     Dosage: UNK, UNK, THIN FILM TO AFFECTED AREAS QD
     Route: 061
     Dates: start: 20160815
  5. OMEPRAZOLE. [Concomitant]
     Active Substance: OMEPRAZOLE
  6. ADVAIR HFA [Concomitant]
     Active Substance: FLUTICASONE PROPIONATE\SALMETEROL XINAFOATE
  7. AQUAPHOR [Concomitant]
     Active Substance: PETROLATUM
     Dosage: UNK
  8. SIMVASTATIN. [Concomitant]
     Active Substance: SIMVASTATIN
  9. XOPENEX [Concomitant]
     Active Substance: LEVALBUTEROL HYDROCHLORIDE

REACTIONS (9)
  - Pruritus [Not Recovered/Not Resolved]
  - Intentional dose omission [Unknown]
  - Blister [Not Recovered/Not Resolved]
  - Eye irritation [Recovered/Resolved]
  - Rash [Not Recovered/Not Resolved]
  - Skin exfoliation [Recovering/Resolving]
  - Vision blurred [Not Recovered/Not Resolved]
  - Therapy non-responder [Unknown]
  - Erythema [Recovering/Resolving]

NARRATIVE: CASE EVENT DATE: 20161203
